FAERS Safety Report 6288015-2 (Version None)
Quarter: 2009Q3

REPORT INFORMATION
  Report Type: 
  Country: None (occurrence: None)
  Receive Date: 20090729
  Receipt Date: 20090716
  Transmission Date: 20100115
  Serious: Yes (Hospitalization)
  Sender: FDA-Public Use
  Company Number: RO-ROCHE-644276

PATIENT
  Sex: Female
  Weight: 53 kg

DRUGS (3)
  1. PEGASYS [Suspect]
     Dosage: FREQUENCY REPORTED AS Q WEEKLY (EVERY WEEK).
     Route: 058
     Dates: start: 20081201, end: 20090701
  2. COPEGUS [Suspect]
     Dosage: FREQUENCY REPORTED AS DAILY.
     Route: 048
     Dates: start: 20081201, end: 20090701
  3. SILIMARIN [Concomitant]
     Dosage: DRUG NAME REPORTED AS SILIMARINUM. FREQUENCY REPORTED AS DAILY.
     Route: 048

REACTIONS (5)
  - COAGULOPATHY [None]
  - ECCHYMOSIS [None]
  - EPISTAXIS [None]
  - HAEMATURIA [None]
  - HAEMORRHAGE [None]
